FAERS Safety Report 9966047 (Version 1)
Quarter: 2014Q1

REPORT INFORMATION
  Report Type: Report from Study
  Country: US (occurrence: US)
  Receive Date: 20140305
  Receipt Date: 20140305
  Transmission Date: 20141002
  Serious: No
  Sender: FDA-Public Use
  Company Number: US-ABBVIE-13P-163-1127681-00

PATIENT
  Age: 20 Year
  Sex: Female

DRUGS (11)
  1. HUMIRA [Suspect]
     Indication: COLITIS ULCERATIVE
     Dosage: ON FRIDAY
     Route: 058
     Dates: start: 201304
  2. ASACOL [Concomitant]
     Indication: COLITIS ULCERATIVE
     Dates: start: 2008
  3. FOLIC ACID [Concomitant]
     Indication: COLITIS ULCERATIVE
     Dosage: 1 MG DAILY
     Route: 048
     Dates: start: 2008
  4. MULTIVITAMIN [Concomitant]
     Indication: PRODUCT USED FOR UNKNOWN INDICATION
     Dosage: DAILY
     Route: 048
     Dates: start: 2008
  5. PENTASA [Concomitant]
     Indication: COLITIS ULCERATIVE
     Route: 048
     Dates: start: 2011
  6. PROBIOTIC [Concomitant]
     Indication: COLITIS ULCERATIVE
     Dosage: PACKET DAILY
     Route: 048
     Dates: start: 2012
  7. IRON [Concomitant]
     Indication: HAEMOGLOBIN
     Dosage: 25 MG DAILY
     Route: 048
     Dates: start: 201301
  8. IRON [Concomitant]
     Indication: COLITIS ULCERATIVE
  9. PREDNISONE [Concomitant]
     Indication: COLITIS
     Dosage: 2.5 MG TAPERING DOWN
     Route: 048
     Dates: end: 20130517
  10. IMURAN [Concomitant]
     Indication: PRODUCT USED FOR UNKNOWN INDICATION
     Route: 048
  11. IMURAN [Concomitant]
     Dosage: 50 MG IN AM AND 75 MG IN PM
     Route: 048

REACTIONS (3)
  - Drug level decreased [Not Recovered/Not Resolved]
  - Gastrointestinal bacterial infection [Not Recovered/Not Resolved]
  - Rash pruritic [Not Recovered/Not Resolved]
